FAERS Safety Report 17765892 (Version 1)
Quarter: 2020Q2

REPORT INFORMATION
  Report Type: Spontaneous
  Country: US (occurrence: US)
  Receive Date: 20200511
  Receipt Date: 20200511
  Transmission Date: 20200714
  Serious: No
  Sender: FDA-Public Use
  Company Number: None

PATIENT
  Age: 70 Year
  Sex: Male

DRUGS (1)
  1. VARENICLINE (VARENICLINE TAB STARTER PACK, 53) [Suspect]
     Active Substance: VARENICLINE
     Dates: start: 20190911, end: 20190927

REACTIONS (1)
  - Agitation [None]

NARRATIVE: CASE EVENT DATE: 20190927
